FAERS Safety Report 6224183-6 (Version None)
Quarter: 2009Q2

REPORT INFORMATION
  Report Type: 
  Country: None (occurrence: None)
  Receive Date: 20090612
  Receipt Date: 20090306
  Transmission Date: 20091009
  Serious: No
  Sender: FDA-Public Use
  Company Number: US-ABBOTT-09P-163-0561745-00

PATIENT
  Sex: Female
  Weight: 61.744 kg

DRUGS (7)
  1. HUMIRA [Suspect]
     Indication: RHEUMATOID ARTHRITIS
     Route: 058
     Dates: start: 20080704, end: 20090212
  2. OPANA ER [Concomitant]
     Indication: PAIN
  3. LEVOTHYROXINE [Concomitant]
     Indication: HYPOTHYROIDISM
  4. VERAPAMIL [Concomitant]
     Indication: HEART RATE INCREASED
  5. OXYCODONE [Concomitant]
     Indication: BREAKTHROUGH PAIN
  6. XANAX [Concomitant]
     Indication: ANXIETY
  7. PREMPRO [Concomitant]
     Indication: HORMONE REPLACEMENT THERAPY

REACTIONS (17)
  - ABDOMINAL PAIN [None]
  - CONTUSION [None]
  - DRUG INEFFECTIVE [None]
  - DYSPNOEA [None]
  - FEELING HOT [None]
  - HYPERHIDROSIS [None]
  - HYPERSENSITIVITY [None]
  - MIGRAINE [None]
  - MOBILITY DECREASED [None]
  - NERVOUSNESS [None]
  - PAIN [None]
  - PANIC ATTACK [None]
  - RASH [None]
  - RAYNAUD'S PHENOMENON [None]
  - ROAD TRAFFIC ACCIDENT [None]
  - TREMOR [None]
  - WITHDRAWAL SYNDROME [None]
